FAERS Safety Report 15268924 (Version 1)
Quarter: 2018Q3

REPORT INFORMATION
  Report Type: Report from Study
  Country: None (occurrence: US)
  Receive Date: 20180813
  Receipt Date: 20180813
  Transmission Date: 20181010
  Serious: Yes (Hospitalization)
  Sender: FDA-Public Use
  Company Number: US-ABBVIE-18K-163-2444124-00

PATIENT
  Age: 56 Year
  Sex: Female

DRUGS (4)
  1. CELEBREX [Concomitant]
     Active Substance: CELECOXIB
     Indication: PRODUCT USED FOR UNKNOWN INDICATION
  2. MIRALAX [Concomitant]
     Active Substance: POLYETHYLENE GLYCOL 3350
     Indication: PRODUCT USED FOR UNKNOWN INDICATION
  3. TRAMADOL. [Concomitant]
     Active Substance: TRAMADOL
     Indication: PRODUCT USED FOR UNKNOWN INDICATION
  4. HUMIRA [Suspect]
     Active Substance: ADALIMUMAB
     Indication: CROHN^S DISEASE
     Route: 058

REACTIONS (10)
  - Large intestinal obstruction [Recovered/Resolved]
  - Crohn^s disease [Unknown]
  - Colitis [Unknown]
  - Grip strength decreased [Unknown]
  - Constipation [Recovered/Resolved]
  - Intestinal scarring [Unknown]
  - Osteoporosis [Not Recovered/Not Resolved]
  - Gastrointestinal hypomotility [Recovered/Resolved]
  - Drug effect incomplete [Unknown]
  - Large intestinal ulcer [Unknown]

NARRATIVE: CASE EVENT DATE: 2017
